FAERS Safety Report 5635846-5 (Version None)
Quarter: 2008Q1

REPORT INFORMATION
  Report Type: 
  Country: None (occurrence: None)
  Receive Date: 20080221
  Receipt Date: 20080208
  Transmission Date: 20080703
  Serious: Yes (Hospitalization, Other)
  Sender: FDA-Public Use
  Company Number: 2008JP000764

PATIENT
  Age: 42 Year
  Sex: Male

DRUGS (6)
  1. PROGRAF [Suspect]
     Indication: RENAL TRANSPLANT
  2. MYCOPHENOLATE MOFETIL [Concomitant]
  3. METHYLPREDNISOLONE [Concomitant]
  4. SIMULECT [Concomitant]
  5. GANCICLOVIR [Concomitant]
  6. VALGANCICLOVIR HCL [Concomitant]

REACTIONS (4)
  - ANAEMIA [None]
  - BONE MARROW FAILURE [None]
  - CYTOMEGALOVIRUS INFECTION [None]
  - ERYTHEMA INFECTIOSUM [None]
